FAERS Safety Report 8043170-9 (Version None)
Quarter: 2012Q1

REPORT INFORMATION
  Report Type: 
  Country: None (occurrence: None)
  Receive Date: 20120112
  Receipt Date: 20120103
  Transmission Date: 20120608
  Serious: Yes (Other)
  Sender: FDA-Public Use
  Company Number: US-ASTRAZENECA-2011SE67737

PATIENT
  Age: 59 Year
  Sex: Female

DRUGS (3)
  1. SYMBICORT [Suspect]
     Dosage: TWO PUFFS TWICE DAILY
     Route: 055
  2. SYMBICORT [Suspect]
     Indication: CHRONIC OBSTRUCTIVE PULMONARY DISEASE
     Dosage: 160/4.5 MCG, TWO PUFFS DAILY
     Route: 055
     Dates: start: 20100101
  3. SYMBICORT [Suspect]
     Dosage: 160/4.5 MCG, TWO PUFFS DAILY
     Route: 055
     Dates: start: 20111019, end: 20111102

REACTIONS (7)
  - PULMONARY OEDEMA [None]
  - ORAL CANDIDIASIS [None]
  - DRUG DOSE OMISSION [None]
  - MALAISE [None]
  - URINARY TRACT INFECTION [None]
  - PYREXIA [None]
  - BLOOD URINE PRESENT [None]
